FAERS Safety Report 4432771-2 (Version None)
Quarter: 2004Q3

REPORT INFORMATION
  Report Type: 
  Country: None (occurrence: None)
  Receive Date: 20040823
  Receipt Date: 20040811
  Transmission Date: 20050211
  Serious: Yes (Hospitalization)
  Sender: FDA-Public Use
  Company Number: UKO04000164

PATIENT
  Age: 64 Year
  Sex: Female
  Weight: 42 kg

DRUGS (3)
  1. METAMUCIL-2 [Suspect]
     Dosage: 1 TEASPOON, ONCE ONLY, ORAL
     Route: 048
     Dates: start: 20040327, end: 20040327
  2. VIOXX [Concomitant]
  3. CO-DAFALGAN(CODEINE PHOSPHATE HEMIHYDRATE) [Concomitant]

REACTIONS (8)
  - ANAPHYLACTIC REACTION [None]
  - CHILLS [None]
  - COUGH [None]
  - DIZZINESS [None]
  - DYSPNOEA [None]
  - ERYTHEMA [None]
  - PRURITUS [None]
  - URTICARIA [None]
